FAERS Safety Report 7203699-X (Version None)
Quarter: 2010Q4

REPORT INFORMATION
  Report Type: 
  Country: None (occurrence: None)
  Receive Date: 20101230
  Receipt Date: 20100817
  Transmission Date: 20110411
  Serious: Yes (Other)
  Sender: FDA-Public Use
  Company Number: IN-BAXTER-2010BH021933

PATIENT
  Sex: Female

DRUGS (1)
  1. LACTATED RINGER'S AND DEXTROSE 5% IN PLASTIC CONTAINER [Suspect]
     Indication: POSTOPERATIVE CARE
     Route: 042
     Dates: start: 20100815, end: 20100815

REACTIONS (2)
  - BODY TEMPERATURE INCREASED [None]
  - CHILLS [None]
